FAERS Safety Report 7467268-9 (Version None)
Quarter: 2011Q2

REPORT INFORMATION
  Report Type: 
  Country: None (occurrence: None)
  Receive Date: 20110505
  Receipt Date: 20110505
  Transmission Date: 20111010
  Serious: Yes (Hospitalization)
  Sender: FDA-Public Use
  Company Number: None

PATIENT

DRUGS (1)
  1. ALLOPURINOL [Suspect]
     Indication: GOUT
     Dosage: 50 MG EVERY DAY PO
     Route: 048
     Dates: start: 20100305, end: 20100823

REACTIONS (7)
  - THROMBOCYTOPENIA [None]
  - CONDITION AGGRAVATED [None]
  - LINEAR IGA DISEASE [None]
  - SUPERINFECTION [None]
  - RENAL FAILURE ACUTE [None]
  - GOUT [None]
  - CELLULITIS [None]
